FAERS Safety Report 10186820 (Version 14)
Quarter: 2018Q1

REPORT INFORMATION
  Report Type: Report from Study
  Country: BR (occurrence: BR)
  Receive Date: 20140522
  Receipt Date: 20180221
  Transmission Date: 20180508
  Serious: Yes (Life-Threatening, Hospitalization, Other)
  Sender: FDA-Public Use
  Company Number: PHHY2012BR087968

PATIENT
  Sex: Male
  Weight: 25 kg

DRUGS (24)
  1. NASACORT [Concomitant]
     Active Substance: TRIAMCINOLONE ACETONIDE
     Indication: RHINITIS
  2. EXJADE [Suspect]
     Active Substance: DEFERASIROX
     Dosage: 5 MG/KG, 1 DF (125 MG), QOD
     Route: 048
     Dates: start: 2013, end: 201311
  3. EXJADE [Suspect]
     Active Substance: DEFERASIROX
     Dosage: 10 MG/KG, 1 DF (250MG), QD
     Route: 048
  4. DEFEROXAMINE [Suspect]
     Active Substance: DEFEROXAMINE\DEFEROXAMINE MESYLATE
     Indication: CHELATION THERAPY
     Dosage: 500 MG (2 AMPOULES OF 5 ML), QHS
     Route: 042
     Dates: start: 201402
  5. DEFEROXAMINE [Suspect]
     Active Substance: DEFEROXAMINE\DEFEROXAMINE MESYLATE
     Dosage: 1000 MG, (2 APPLICATIONS) DAILY
     Route: 042
     Dates: start: 20140315, end: 20140427
  6. EXJADE [Suspect]
     Active Substance: DEFERASIROX
     Dosage: 125 MG, QOD
     Route: 048
  7. DEFEROXAMINE [Suspect]
     Active Substance: DEFEROXAMINE\DEFEROXAMINE MESYLATE
     Dosage: 1000 MG, (1 APPLICATION) DAILY
     Route: 058
     Dates: start: 20140428
  8. EXJADE [Suspect]
     Active Substance: DEFERASIROX
     Dosage: 20 MG/KG, 1 DF (500 MG), QD
     Route: 048
     Dates: start: 201301, end: 201303
  9. EXJADE [Suspect]
     Active Substance: DEFERASIROX
     Dosage: 10 MG/KG, (1 DF, (250MG) QD)
     Route: 048
     Dates: start: 201303
  10. EXJADE [Suspect]
     Active Substance: DEFERASIROX
     Dosage: 10 MG/KG, 1 DF (250MG), QD
     Route: 048
  11. ADEROGYL [Concomitant]
     Indication: BONE DISORDER
     Dosage: 5 GTT, QD
     Route: 065
  12. EXJADE [Suspect]
     Active Substance: DEFERASIROX
     Indication: CONGENITAL APLASTIC ANAEMIA
     Dosage: 10 MG/KG, (1 DF (250MG), QD)
     Route: 048
  13. EXJADE [Suspect]
     Active Substance: DEFERASIROX
     Dosage: 3 TABLETS A DAY (750 MG)/ 3 TIMES A WEEK
     Route: 048
  14. ADEROGYL [Concomitant]
     Dosage: 5 GTT, QD
     Route: 065
  15. EXJADE [Suspect]
     Active Substance: DEFERASIROX
     Dosage: 20 MG/KG, (1 DF (500 MG), QD)
     Route: 048
  16. EXJADE [Suspect]
     Active Substance: DEFERASIROX
     Dosage: 125 MG, UNK
     Route: 048
  17. DEFEROXAMINE [Suspect]
     Active Substance: DEFEROXAMINE\DEFEROXAMINE MESYLATE
     Dosage: 500 MG (2 AMPOULES OF 5 ML), QHS
     Route: 042
  18. NASACORT [Concomitant]
     Active Substance: TRIAMCINOLONE ACETONIDE
     Indication: SINUSITIS
     Dosage: UNK, BID
     Route: 065
  19. EXJADE [Suspect]
     Active Substance: DEFERASIROX
     Dosage: ALTERNATING BETWEEN 250 AND 125 MG QD
     Route: 048
  20. EXJADE [Suspect]
     Active Substance: DEFERASIROX
     Dosage: 20 MG/KG, 2 DF OF 250 MG, QD
     Route: 048
     Dates: start: 201510
  21. EXJADE [Suspect]
     Active Substance: DEFERASIROX
     Dosage: 500 MG, QD (ONCE DAILY)
     Route: 048
  22. EXJADE [Suspect]
     Active Substance: DEFERASIROX
     Dosage: 2 TABLETS A DAY (500 MG)/ 4 TIMES A WEEKS
     Route: 048
  23. DEFEROXAMINE [Suspect]
     Active Substance: DEFEROXAMINE\DEFEROXAMINE MESYLATE
     Dosage: 500 MG, QHS (1 APPLICATION) AT NIGHT
     Route: 042
     Dates: start: 20140301, end: 20140315
  24. SOMATROPIN. [Concomitant]
     Active Substance: SOMATROPIN
     Indication: BLOOD GROWTH HORMONE ABNORMAL
     Dosage: 4 MG, 1 APPLICATION DAILY
     Route: 065

REACTIONS (26)
  - Mouth ulceration [Unknown]
  - Adenoidal disorder [Not Recovered/Not Resolved]
  - Weight decreased [Not Recovered/Not Resolved]
  - Aphthous ulcer [Not Recovered/Not Resolved]
  - Sinusitis [Unknown]
  - Rhinitis [Unknown]
  - Crying [Unknown]
  - Constipation [Unknown]
  - Fatigue [Unknown]
  - Hepatic siderosis [Unknown]
  - Pyrexia [Recovered/Resolved]
  - Dyspnoea [Recovered/Resolved]
  - Nasal congestion [Recovered/Resolved]
  - Drug ineffective [Recovering/Resolving]
  - Flatulence [Not Recovered/Not Resolved]
  - Decreased appetite [Not Recovered/Not Resolved]
  - Serum ferritin increased [Unknown]
  - Hepatic enzyme abnormal [Recovered/Resolved]
  - Pain [Unknown]
  - Eating disorder [Unknown]
  - Weight increased [Unknown]
  - Hepatic enzyme abnormal [Unknown]
  - Nephrolithiasis [Not Recovered/Not Resolved]
  - Influenza [Recovered/Resolved]
  - Cardiac iron overload [Unknown]
  - Dermatitis allergic [Not Recovered/Not Resolved]
